FAERS Safety Report 22345110 (Version 1)
Quarter: 2023Q2

REPORT INFORMATION
  Report Type: Spontaneous
  Country: US (occurrence: None)
  Receive Date: 20230518
  Receipt Date: 20230518
  Transmission Date: 20230721
  Serious: No
  Sender: FDA-Public Use
  Company Number: None

PATIENT
  Age: 62 Year
  Sex: Female
  Weight: 82.55 kg

DRUGS (26)
  1. LENALIDOMIDE [Suspect]
     Active Substance: LENALIDOMIDE
     Indication: Plasma cell myeloma
     Dosage: 10MG DAILY ORAL
     Route: 048
     Dates: start: 202209
  2. ACYCLOVIR [Concomitant]
     Active Substance: ACYCLOVIR
  3. ATORVASTATIN [Concomitant]
  4. VITAMIN B12 [Concomitant]
     Active Substance: CYANOCOBALAMIN
  5. BACLOFEN [Concomitant]
     Active Substance: BACLOFEN
  6. BACTRIM DS [Concomitant]
     Active Substance: SULFAMETHOXAZOLE\TRIMETHOPRIM
  7. BIOTIN [Concomitant]
  8. BLACK SEED OIL [Concomitant]
  9. CLOPIDOGREL [Concomitant]
  10. DULOXETINE [Concomitant]
     Active Substance: DULOXETINE
  11. ELIQUIS [Concomitant]
     Active Substance: APIXABAN
  12. FLAXSEED [Concomitant]
     Active Substance: FLAX SEED
  13. GABAPENTIN [Concomitant]
     Active Substance: GABAPENTIN
  14. LASIX [Concomitant]
     Active Substance: FUROSEMIDE
  15. LISINOPRIL [Concomitant]
     Active Substance: LISINOPRIL
  16. METOPROLOL [Concomitant]
     Active Substance: METOPROLOL
  17. VITAMINS [Concomitant]
     Active Substance: VITAMINS
  18. OMEPRAZONE [Concomitant]
  19. PENNICILLIN [Concomitant]
  20. POTASSIUM [Concomitant]
  21. PROPRANOLOL [Concomitant]
     Active Substance: PROPRANOLOL HYDROCHLORIDE
  22. VALSARTAN [Concomitant]
     Active Substance: VALSARTAN
  23. VITAMIN B COMPLEX [Concomitant]
     Active Substance: CYANOCOBALAMIN\DEXPANTHENOL\NIACINAMIDE\PYRIDOXINE HYDROCHLORIDE\RIBOFLAVIN 5^-PHOSPHATE SODIUM\THIA
  24. VITAMIN C+ROSE HIPS [Concomitant]
  25. VITAMIN D3 [Concomitant]
     Active Substance: CHOLECALCIFEROL
  26. ZINC [Concomitant]
     Active Substance: ZINC

REACTIONS (2)
  - White blood cell count decreased [None]
  - Therapy interrupted [None]
